FAERS Safety Report 12735060 (Version 1)
Quarter: 2016Q3

REPORT INFORMATION
  Report Type: Spontaneous
  Country: RU (occurrence: RU)
  Receive Date: 20160912
  Receipt Date: 20160912
  Transmission Date: 20161109
  Serious: Yes (Other)
  Sender: FDA-Public Use
  Company Number: RU-BAYER-2016-132926

PATIENT
  Sex: Male

DRUGS (7)
  1. CIPROBAY [Suspect]
     Active Substance: CIPROFLOXACIN
     Dosage: UNK
     Route: 048
     Dates: start: 2011
  2. AMIKACIN [Suspect]
     Active Substance: AMIKACIN
     Dosage: 2 MG, BID
     Route: 042
  3. MEROPENEM. [Suspect]
     Active Substance: MEROPENEM
     Dosage: 750 MG, QD
     Route: 042
  4. MEROPENEM. [Suspect]
     Active Substance: MEROPENEM
     Dosage: UNK
     Dates: start: 201103
  5. AMIKACIN [Suspect]
     Active Substance: AMIKACIN
     Dosage: UNK
     Dates: start: 201103
  6. MEROPENEM. [Suspect]
     Active Substance: MEROPENEM
     Dosage: UNK
     Dates: start: 201109
  7. AMIKACIN [Suspect]
     Active Substance: AMIKACIN
     Dosage: UNK
     Dates: start: 201109

REACTIONS (3)
  - Pyrexia [None]
  - Infective pulmonary exacerbation of cystic fibrosis [None]
  - Haemoptysis [None]

NARRATIVE: CASE EVENT DATE: 2011
